FAERS Safety Report 8004052-1 (Version None)
Quarter: 2011Q4

REPORT INFORMATION
  Report Type: 
  Country: None (occurrence: None)
  Receive Date: 20111222
  Receipt Date: 20111213
  Transmission Date: 20120403
  Serious: Yes (Other)
  Sender: FDA-Public Use
  Company Number: JP-ASTRAZENECA-2011SE68374

PATIENT
  Age: 27900 Day
  Sex: Male
  Weight: 54 kg

DRUGS (14)
  1. AMLODIPINE [Concomitant]
     Indication: HYPERTENSION
     Route: 048
  2. AZUCURENIN S [Concomitant]
     Indication: GASTROOESOPHAGEAL REFLUX DISEASE
     Route: 048
  3. DIOVAN [Concomitant]
     Indication: HYPERTENSION
     Route: 048
  4. EPINAZION [Concomitant]
     Indication: PRURITUS
     Route: 048
  5. IRESSA [Suspect]
     Indication: LUNG ADENOCARCINOMA
     Route: 048
     Dates: start: 20100929
  6. HALTHROW [Concomitant]
     Indication: BENIGN PROSTATIC HYPERPLASIA
     Route: 048
  7. PLETAL [Concomitant]
     Indication: CEREBRAL INFARCTION
     Route: 048
  8. GASMOTIN [Concomitant]
     Indication: GASTROOESOPHAGEAL REFLUX DISEASE
     Route: 048
  9. FUROSEMIDE [Concomitant]
     Indication: HYPERTENSION
     Route: 048
  10. HUMALOG [Concomitant]
     Dosage: DOSE UNKNOWN
     Route: 065
     Dates: start: 20110407
  11. AROPHALM [Concomitant]
     Indication: INSOMNIA
     Route: 048
  12. LANSOPRAZOLE [Concomitant]
     Indication: GASTROOESOPHAGEAL REFLUX DISEASE
     Route: 048
  13. ASPIRIN [Concomitant]
     Indication: CEREBRAL INFARCTION
     Route: 048
  14. VOGLIBOSE [Concomitant]
     Indication: DIABETES MELLITUS
     Route: 048

REACTIONS (10)
  - METASTASES TO LIVER [None]
  - RASH PAPULAR [None]
  - DIARRHOEA [None]
  - PLEURAL EFFUSION [None]
  - XERODERMA [None]
  - RASH PRURITIC [None]
  - PETECHIAE [None]
  - DIABETES MELLITUS [None]
  - SKIN LESION [None]
  - SKIN DISORDER [None]
